FAERS Safety Report 17902897 (Version 1)
Quarter: 2020Q2

REPORT INFORMATION
  Report Type: Spontaneous
  Country: US (occurrence: US)
  Receive Date: 20200617
  Receipt Date: 20200617
  Transmission Date: 20200714
  Serious: No
  Sender: FDA-Public Use
  Company Number: US-TEVA-2020-US-1541979

PATIENT
  Age: 85 Year
  Sex: Male

DRUGS (2)
  1. TEMAZEPAM TEVA [Suspect]
     Active Substance: TEMAZEPAM
     Indication: INITIAL INSOMNIA
     Route: 065
     Dates: start: 2009
  2. ALPRAZOLAM. [Concomitant]
     Active Substance: ALPRAZOLAM
     Indication: ANXIETY
     Dates: start: 2009

REACTIONS (5)
  - Fall [Unknown]
  - Therapeutic product effect variable [Unknown]
  - Product use issue [Unknown]
  - Nightmare [Not Recovered/Not Resolved]
  - Middle insomnia [Not Recovered/Not Resolved]

NARRATIVE: CASE EVENT DATE: 2009
